FAERS Safety Report 9412773 (Version 1)
Quarter: 2013Q3

REPORT INFORMATION
  Report Type: Report from Study
  Country: PH (occurrence: PH)
  Receive Date: 20130722
  Receipt Date: 20130722
  Transmission Date: 20140515
  Serious: Yes (Death)
  Sender: FDA-Public Use
  Company Number: PHHY2013PH077742

PATIENT
  Age: 67 Year
  Sex: Female

DRUGS (3)
  1. ACLASTA [Suspect]
     Indication: OSTEOPOROSIS
     Dosage: ANNUALLY
     Route: 042
  2. ACLASTA [Suspect]
     Dosage: ANNUALLY
     Route: 042
  3. ACLASTA [Suspect]
     Dosage: ANNUALLY
     Route: 042
     Dates: start: 20110125

REACTIONS (1)
  - Death [Fatal]
